FAERS Safety Report 14490776 (Version 2)
Quarter: 2018Q1

REPORT INFORMATION
  Report Type: Report from Study
  Country: CN (occurrence: CN)
  Receive Date: 20180206
  Receipt Date: 20180213
  Transmission Date: 20180509
  Serious: No
  Sender: FDA-Public Use
  Company Number: CN-ASTELLAS-2018US005909

PATIENT
  Age: 64 Year
  Sex: Male
  Weight: 64 kg

DRUGS (1)
  1. TARCEVA [Suspect]
     Active Substance: ERLOTINIB HYDROCHLORIDE
     Indication: NON-SMALL CELL LUNG CANCER
     Route: 048
     Dates: start: 20161001, end: 20170214

REACTIONS (5)
  - Mouth ulceration [Recovered/Resolved]
  - Hyperglycaemia [Recovered/Resolved]
  - Blood creatinine increased [Unknown]
  - Aspartate aminotransferase increased [Recovered/Resolved]
  - Anaemia [Not Recovered/Not Resolved]

NARRATIVE: CASE EVENT DATE: 20161025
